FAERS Safety Report 8572608-3 (Version None)
Quarter: 2012Q3

REPORT INFORMATION
  Report Type: 
  Country: None (occurrence: None)
  Receive Date: 20120806
  Receipt Date: 20120802
  Transmission Date: 20120928
  Serious: Yes (Hospitalization)
  Sender: FDA-Public Use
  Company Number: JP-ABBOTT-12P-087-0942788-00

PATIENT
  Sex: Female
  Weight: 41.1 kg

DRUGS (12)
  1. HUMIRA [Suspect]
     Indication: RHEUMATOID ARTHRITIS
     Route: 058
  2. MOSAPRIDE CITRATE HYDRATE [Concomitant]
     Indication: RHEUMATOID ARTHRITIS
     Route: 048
  3. VITAMIN B COMPLEX CAP [Concomitant]
     Indication: RHEUMATOID ARTHRITIS
     Route: 048
  4. CLENBUTEROL HYDROCHLORIDE [Concomitant]
     Indication: STRESS URINARY INCONTINENCE
     Route: 048
  5. PREDNISOLONE [Concomitant]
     Indication: RHEUMATOID ARTHRITIS
     Route: 048
  6. RABEPRAZOLE SODIUM [Concomitant]
     Indication: RHEUMATOID ARTHRITIS
     Route: 048
  7. FUDOSTEINE [Concomitant]
     Indication: RHEUMATOID ARTHRITIS
     Route: 048
  8. LOXOPROFEN SODIUM HYDRATE [Concomitant]
     Indication: RHEUMATOID ARTHRITIS
     Route: 048
  9. ALFACALCIDOL [Concomitant]
     Indication: RHEUMATOID ARTHRITIS
     Route: 048
  10. PILOCARPINE HYDROCHLORIDE [Concomitant]
     Indication: SJOGREN'S SYNDROME
     Route: 048
  11. SG COMBINATION GRANULE [Suspect]
     Indication: DENTAL CARE
     Route: 048
     Dates: start: 20120208, end: 20120530
  12. ASCORBIC ACID/CALCIUM PANTOTHENATE [Concomitant]
     Indication: RHEUMATOID ARTHRITIS
     Route: 048

REACTIONS (5)
  - COMPLEMENT FACTOR C3 INCREASED [None]
  - BLISTER [None]
  - BIOPSY SKIN ABNORMAL [None]
  - DERMATITIS BULLOUS [None]
  - BLOOD IMMUNOGLOBULIN M INCREASED [None]
